FAERS Safety Report 16305594 (Version 8)
Quarter: 2021Q3

REPORT INFORMATION
  Report Type: Spontaneous
  Country: US (occurrence: US)
  Receive Date: 20190513
  Receipt Date: 20210909
  Transmission Date: 20211014
  Serious: No
  Sender: FDA-Public Use
  Company Number: US-PFIZER INC-2019198112

PATIENT
  Age: 65 Year
  Sex: Female
  Weight: 48.53 kg

DRUGS (2)
  1. PREMPRO [Suspect]
     Active Substance: ESTROGENS, CONJUGATED\MEDROXYPROGESTERONE ACETATE
     Indication: MENOPAUSAL SYMPTOMS
     Dosage: UNK [0.45/1.5 MG]
     Dates: start: 2018
  2. PREMPRO [Suspect]
     Active Substance: ESTROGENS, CONJUGATED\MEDROXYPROGESTERONE ACETATE
     Indication: OESTROGEN DEFICIENCY
     Dosage: UNK, 1X/DAY (0.45MG/1.5MG O.I.D. (ONCE IN A DAY))

REACTIONS (3)
  - Abnormal behaviour [Recovered/Resolved]
  - Feeling abnormal [Unknown]
  - Product prescribing error [Recovered/Resolved]
